FAERS Safety Report 11840463 (Version 1)
Quarter: 2015Q4

REPORT INFORMATION
  Report Type: Spontaneous
  Country: US (occurrence: None)
  Receive Date: 20151215
  Receipt Date: 20151215
  Transmission Date: 20160305
  Serious: Yes (Other)
  Sender: FDA-Public Use
  Company Number: None

PATIENT
  Age: 54 Year
  Sex: Female
  Weight: 86.18 kg

DRUGS (7)
  1. TAMOXIFEN CITRATE. [Concomitant]
     Active Substance: TAMOXIFEN CITRATE
  2. TAMOXIFEN CITRATE 20 MG WATSON LABORATORIES, INC. [Suspect]
     Active Substance: TAMOXIFEN CITRATE
     Indication: INFLAMMATORY CARCINOMA OF THE BREAST
     Dosage: TAKEN BY MOUTH
     Dates: start: 20151115, end: 20151213
  3. CATRATE [Concomitant]
  4. ATORVASTATIN [Concomitant]
     Active Substance: ATORVASTATIN
  5. VITAMIN D [Concomitant]
     Active Substance: CHOLECALCIFEROL
  6. LOSARTAN-HCTZ [Concomitant]
     Active Substance: HYDROCHLOROTHIAZIDE\LOSARTAN
  7. TURMERIC (SPICE) [Concomitant]

REACTIONS (5)
  - Throat irritation [None]
  - Vision blurred [None]
  - Weight increased [None]
  - Product substitution issue [None]
  - Headache [None]

NARRATIVE: CASE EVENT DATE: 20151106
